FAERS Safety Report 6168157-2 (Version None)
Quarter: 2009Q2

REPORT INFORMATION
  Report Type: 
  Country: None (occurrence: None)
  Receive Date: 20090427
  Receipt Date: 20090422
  Transmission Date: 20091009
  Serious: Yes (Life-Threatening, Hospitalization)
  Sender: FDA-Public Use
  Company Number: AU-ASTRAZENECA-2009AP02787

PATIENT
  Age: 84 Year
  Sex: Female

DRUGS (1)
  1. CRESTOR [Suspect]
     Route: 048
     Dates: start: 20080101

REACTIONS (2)
  - ABASIA [None]
  - RHABDOMYOLYSIS [None]
